FAERS Safety Report 23077956 (Version 2)
Quarter: 2023Q4

REPORT INFORMATION
  Report Type: Report from Study
  Country: US (occurrence: None)
  Receive Date: 20231018
  Receipt Date: 20231129
  Transmission Date: 20240110
  Serious: Yes (Other)
  Sender: FDA-Public Use
  Company Number: 2023A233050

PATIENT
  Sex: Female

DRUGS (12)
  1. FASENRA [Suspect]
     Active Substance: BENRALIZUMAB
     Indication: Asthma prophylaxis
     Dosage: 30MG/ML
     Route: 058
  2. AMOXICILLIN [Concomitant]
     Active Substance: AMOXICILLIN
     Dosage: 875 MG
  3. ADVAIR DISKU [Concomitant]
     Dosage: 500 TO50 MC
  4. ALBUTEROL [Concomitant]
     Active Substance: ALBUTEROL
     Dosage: (2.5 MG/
  5. LORATADINE [Concomitant]
     Active Substance: LORATADINE
     Dosage: 10 MG
  6. LOSARTAN [Concomitant]
     Active Substance: LOSARTAN
     Dosage: 100 MG
  7. MAGNESIUM [Concomitant]
     Active Substance: MAGNESIUM
     Dosage: 400 MG
  8. MONTELUKAST [Concomitant]
     Active Substance: MONTELUKAST SODIUM
     Dosage: 10 MG
  9. OZEMPIC [Concomitant]
     Active Substance: SEMAGLUTIDE
     Dosage: (2 M SOP 8MG/3 ML)
  10. SPIRIVA [Concomitant]
     Active Substance: TIOTROPIUM BROMIDE MONOHYDRATE
     Dosage: HNAD CAP 18 MCG
  11. VITAMIN B12 [Concomitant]
     Active Substance: CYANOCOBALAMIN
     Dosage: 1000 MCG
  12. BUSPIRONE HC [Concomitant]
     Dosage: 30 MG

REACTIONS (4)
  - Blindness [Not Recovered/Not Resolved]
  - Nasal polyps [Not Recovered/Not Resolved]
  - Ocular discomfort [Not Recovered/Not Resolved]
  - Sinus congestion [Not Recovered/Not Resolved]
